FAERS Safety Report 17875570 (Version 1)
Quarter: 2020Q2

REPORT INFORMATION
  Report Type: Report from Study
  Country: CA (occurrence: CA)
  Receive Date: 20200609
  Receipt Date: 20200609
  Transmission Date: 20200714
  Serious: Yes (Death)
  Sender: FDA-Public Use
  Company Number: NVSC2020CA158654

PATIENT
  Age: 60 Year
  Sex: Female

DRUGS (4)
  1. DABRAFENIB [Suspect]
     Active Substance: DABRAFENIB
     Indication: PRODUCT USED FOR UNKNOWN INDICATION
     Dosage: UNK
     Route: 065
  2. TRAMETINIB [Suspect]
     Active Substance: TRAMETINIB
     Indication: METASTATIC NEOPLASM
     Dosage: 1.5 MG
     Route: 048
     Dates: start: 20200402, end: 20200519
  3. FRAGMIN [Suspect]
     Active Substance: DALTEPARIN SODIUM
     Indication: PRODUCT USED FOR UNKNOWN INDICATION
     Dosage: 15000 IU, QD
     Route: 058
  4. TRAMETINIB [Suspect]
     Active Substance: TRAMETINIB
     Indication: OVARIAN CANCER METASTATIC

REACTIONS (2)
  - Haemorrhage [Fatal]
  - Retroperitoneal haematoma [Fatal]

NARRATIVE: CASE EVENT DATE: 20200515
